FAERS Safety Report 23510479 (Version 1)
Quarter: 2024Q1

REPORT INFORMATION
  Report Type: Spontaneous
  Country: US (occurrence: US)
  Receive Date: 20240211
  Receipt Date: 20240211
  Transmission Date: 20240410
  Serious: No
  Sender: FDA-Public Use
  Company Number: US-AMGEN-USASP2024025834

PATIENT
  Sex: Female

DRUGS (1)
  1. KANJINTI [Suspect]
     Active Substance: TRASTUZUMAB-ANNS
     Indication: Anal cancer
     Dosage: DOSE ORDERED: 441 MG, DOSE REQUESTED: KANJINTI 2X420 MG VIALS
     Route: 065

REACTIONS (1)
  - Off label use [Unknown]
